FAERS Safety Report 8905410 (Version 1)
Quarter: 2012Q4

REPORT INFORMATION
  Report Type: 
  Country: US (occurrence: US)
  Receive Date: 20121113
  Receipt Date: 20121113
  Transmission Date: 20130627
  Serious: No
  Sender: FDA-Public Use
  Company Number: US-PFIZER INC-2012283320

PATIENT
  Age: 38 Year
  Sex: Female
  Weight: 59.86 kg

DRUGS (3)
  1. PRISTIQ [Suspect]
     Indication: DEPRESSION
     Dosage: 50 mg, 1x/day
     Route: 048
     Dates: start: 201204, end: 201210
  2. PRISTIQ [Suspect]
     Indication: ANXIETY
  3. XANAX [Concomitant]
     Dosage: UNK

REACTIONS (7)
  - Malaise [Unknown]
  - Personality change [Unknown]
  - Emotional disorder [Unknown]
  - Insomnia [Unknown]
  - Hyperhidrosis [Unknown]
  - Vomiting [Unknown]
  - Nausea [Unknown]
